FAERS Safety Report 13290051 (Version 1)
Quarter: 2017Q1

REPORT INFORMATION
  Report Type: Spontaneous
  Country: FR (occurrence: FR)
  Receive Date: 20170302
  Receipt Date: 20170302
  Transmission Date: 20170428
  Serious: Yes (Death, Hospitalization)
  Sender: FDA-Public Use
  Company Number: FR-FRESENIUS KABI-FK201701732

PATIENT
  Age: 83 Year
  Sex: Male

DRUGS (9)
  1. TIGECYCLINE (MANUFACTURER UNKNOWN) [Suspect]
     Active Substance: TIGECYCLINE
     Indication: BETA HAEMOLYTIC STREPTOCOCCAL INFECTION
  2. COLIMYCINE [Concomitant]
     Active Substance: COLISTIMETHATE SODIUM
     Indication: DEVICE RELATED INFECTION
     Route: 065
  3. LEVOFLOXACINE [Concomitant]
     Active Substance: LEVOFLOXACIN
     Indication: DEVICE RELATED INFECTION
     Route: 065
  4. LEVOFLOXACINE [Concomitant]
     Active Substance: LEVOFLOXACIN
     Indication: STAPHYLOCOCCAL INFECTION
  5. TIGECYCLINE (MANUFACTURER UNKNOWN) [Suspect]
     Active Substance: TIGECYCLINE
     Indication: STAPHYLOCOCCAL INFECTION
     Route: 065
  6. LEVOFLOXACINE [Concomitant]
     Active Substance: LEVOFLOXACIN
     Indication: BETA HAEMOLYTIC STREPTOCOCCAL INFECTION
  7. COLIMYCINE [Concomitant]
     Active Substance: COLISTIMETHATE SODIUM
     Indication: STAPHYLOCOCCAL INFECTION
  8. TIGECYCLINE (MANUFACTURER UNKNOWN) [Suspect]
     Active Substance: TIGECYCLINE
     Indication: DEVICE RELATED INFECTION
     Route: 042
  9. COLIMYCINE [Concomitant]
     Active Substance: COLISTIMETHATE SODIUM
     Indication: BETA HAEMOLYTIC STREPTOCOCCAL INFECTION

REACTIONS (3)
  - Sepsis [Fatal]
  - Shock haemorrhagic [Unknown]
  - Hypofibrinogenaemia [Recovering/Resolving]
